FAERS Safety Report 9392859 (Version 1)
Quarter: 2013Q3

REPORT INFORMATION
  Report Type: Spontaneous
  Country: US (occurrence: US)
  Receive Date: 20130710
  Receipt Date: 20130710
  Transmission Date: 20140515
  Serious: Yes (Other)
  Sender: FDA-Public Use
  Company Number: US-GENZYME-FABR-1003400

PATIENT
  Age: 50 Year
  Sex: Male

DRUGS (8)
  1. FABRAZYME [Suspect]
     Indication: FABRY^S DISEASE
     Dosage: 65 MG, Q2W
     Route: 042
     Dates: start: 20070703
  2. BENADRYL [Concomitant]
     Indication: PREMEDICATION
     Dosage: UNK
     Route: 065
  3. VIMPAT [Concomitant]
     Indication: PRODUCT USED FOR UNKNOWN INDICATION
     Dosage: 50 MG, QD
     Route: 065
  4. LASIX [Concomitant]
     Indication: PRODUCT USED FOR UNKNOWN INDICATION
     Dosage: 160 MG, QD
     Route: 065
  5. POTASSIUM [Concomitant]
     Indication: PRODUCT USED FOR UNKNOWN INDICATION
     Dosage: UNK
     Route: 065
  6. BACLOFEN [Concomitant]
     Indication: PRODUCT USED FOR UNKNOWN INDICATION
     Dosage: UNK
     Route: 065
  7. CALCITRIN [Concomitant]
     Indication: PRODUCT USED FOR UNKNOWN INDICATION
     Dosage: 2 TABLETS 3X/W
     Route: 065
  8. RENVELA [Concomitant]
     Indication: HYPERPHOSPHATAEMIA
     Dosage: 0.8 G, UNK 4 TO 6 WITH MEALS
     Route: 065

REACTIONS (2)
  - Deafness [Not Recovered/Not Resolved]
  - Renal failure [Not Recovered/Not Resolved]
